FAERS Safety Report 10100639 (Version 1)
Quarter: 2014Q2

REPORT INFORMATION
  Report Type: Spontaneous
  Country: US (occurrence: US)
  Receive Date: 20140423
  Receipt Date: 20140423
  Transmission Date: 20141212
  Serious: No
  Sender: FDA-Public Use
  Company Number: US-009507513-1403USA008968

PATIENT
  Sex: Female

DRUGS (2)
  1. CLARITIN [Suspect]
     Indication: PRODUCT USED FOR UNKNOWN INDICATION
     Dosage: 10 MG, ONCE
     Route: 048
     Dates: start: 201402
  2. CLARITIN [Suspect]
     Dosage: 5 MG, UNKNOWN
     Route: 048
     Dates: start: 2014

REACTIONS (2)
  - Somnolence [Unknown]
  - Underdose [Unknown]
